FAERS Safety Report 26151188 (Version 1)
Quarter: 2025Q4

REPORT INFORMATION
  Report Type: Report from Study
  Country: EU (occurrence: EU)
  Receive Date: 20251212
  Receipt Date: 20251212
  Transmission Date: 20260117
  Serious: Yes (Hospitalization, Other)
  Sender: PFIZER
  Company Number: EU-EMA-DD-20251203-7482675-065824

PATIENT
  Age: 47 Year
  Sex: Female
  Weight: 114.7 kg

DRUGS (10)
  1. TRASTUZUMAB [Suspect]
     Active Substance: TRASTUZUMAB
     Dosage: UNK
     Route: 042
     Dates: start: 20180405
  2. TRASTUZUMAB [Suspect]
     Active Substance: TRASTUZUMAB
     Indication: Breast cancer metastatic
     Dosage: 611.2 MG, THREE TIMES A WEEK
     Route: 042
     Dates: start: 20171221
  3. TRASTUZUMAB [Suspect]
     Active Substance: TRASTUZUMAB
     Dosage: UNK, THREE TIMES A WEEK
     Route: 042
     Dates: start: 20180408
  4. DOCETAXEL [Suspect]
     Active Substance: DOCETAXEL
     Indication: Breast cancer metastatic
     Dosage: 167.25 MG, THREE TIMES A WEEK
     Route: 042
     Dates: start: 20171221
  5. DOCETAXEL [Suspect]
     Active Substance: DOCETAXEL
     Dosage: 167.25 MG, THREE TIMES A WEEK
     Route: 042
     Dates: start: 20171222
  6. DOCETAXEL [Suspect]
     Active Substance: DOCETAXEL
     Dosage: UNK
     Route: 042
     Dates: start: 20180405
  7. PERTUZUMAB [Suspect]
     Active Substance: PERTUZUMAB
     Indication: Breast cancer metastatic
     Dosage: 840 MG, THREE TIMES A WEEK
     Route: 042
     Dates: start: 20171221
  8. PERTUZUMAB [Suspect]
     Active Substance: PERTUZUMAB
     Dosage: 420 MG, THREE TIMES A WEEK
     Route: 042
  9. PERTUZUMAB [Suspect]
     Active Substance: PERTUZUMAB
     Dosage: UNK
     Route: 042
     Dates: start: 20180405
  10. TAMOXIFEN [Suspect]
     Active Substance: TAMOXIFEN
     Dosage: UNK
     Route: 065
     Dates: end: 20171208

REACTIONS (13)
  - Menstruation irregular [Unknown]
  - Muscle spasms [Recovered/Resolved]
  - Mucosal dryness [Not Recovered/Not Resolved]
  - Heavy menstrual bleeding [Unknown]
  - Endometrial hyperplasia [Unknown]
  - Nasopharyngitis [Recovered/Resolved]
  - Dyspepsia [Not Recovered/Not Resolved]
  - Diarrhoea [Recovered/Resolved]
  - Nausea [Not Recovered/Not Resolved]
  - Arthralgia [Unknown]
  - Alopecia [Not Recovered/Not Resolved]
  - Pain in extremity [Not Recovered/Not Resolved]
  - Abdominal pain upper [Recovered/Resolved]

NARRATIVE: CASE EVENT DATE: 20171223
